FAERS Safety Report 6837790-4 (Version None)
Quarter: 2010Q3

REPORT INFORMATION
  Report Type: 
  Country: None (occurrence: None)
  Receive Date: 20100713
  Receipt Date: 20070521
  Transmission Date: 20110219
  Serious: No
  Sender: FDA-Public Use
  Company Number: US-PFIZER INC-2007040963

PATIENT
  Sex: Male
  Weight: 104.5 kg

DRUGS (2)
  1. CHANTIX [Suspect]
     Indication: SMOKING CESSATION THERAPY
     Dates: start: 20070513
  2. ALBUTEROL [Concomitant]

REACTIONS (2)
  - INSOMNIA [None]
  - MIDDLE INSOMNIA [None]
